FAERS Safety Report 15816582 (Version 1)
Quarter: 2019Q1

REPORT INFORMATION
  Report Type: Spontaneous
  Country: FR (occurrence: FR)
  Receive Date: 20190113
  Receipt Date: 20190113
  Transmission Date: 20190417
  Serious: Yes (Life-Threatening)
  Sender: FDA-Public Use
  Company Number: FR-ZYDUS-023269

PATIENT
  Age: 49 Year
  Sex: Female
  Weight: 70 kg

DRUGS (3)
  1. KLIPAL CODEINE [Suspect]
     Active Substance: ACETAMINOPHEN\CODEINE PHOSPHATE
     Indication: TOXICITY TO VARIOUS AGENTS
     Dosage: 1050 MG COD2INE ET 12.5 G PARACETAMOL
     Route: 048
     Dates: start: 20180805, end: 20180805
  2. RAMIPRIL. [Suspect]
     Active Substance: RAMIPRIL
     Indication: TOXICITY TO VARIOUS AGENTS
     Route: 048
     Dates: start: 20180805, end: 20180805
  3. TRANXENE [Suspect]
     Active Substance: CLORAZEPATE DIPOTASSIUM
     Indication: TOXICITY TO VARIOUS AGENTS
     Dosage: 145 MG MAX
     Route: 048
     Dates: start: 20180805, end: 20180805

REACTIONS (4)
  - Coma [Not Recovered/Not Resolved]
  - Hypotension [Recovered/Resolved]
  - Toxicity to various agents [Recovered/Resolved]
  - Respiratory failure [Recovered/Resolved]

NARRATIVE: CASE EVENT DATE: 20180805
